FAERS Safety Report 25139835 (Version 4)
Quarter: 2025Q2

REPORT INFORMATION
  Report Type: Spontaneous
  Country: US (occurrence: US)
  Receive Date: 20250331
  Receipt Date: 20250410
  Transmission Date: 20250717
  Serious: Yes (Other)
  Sender: BIOVITRUM
  Company Number: US-BIOVITRUM-2025-US-004350

PATIENT
  Age: 60 Year
  Sex: Male

DRUGS (2)
  1. VONJO [Suspect]
     Active Substance: PACRITINIB
     Indication: Polycythaemia vera
     Route: 048
  2. VONJO [Suspect]
     Active Substance: PACRITINIB
     Indication: Myelofibrosis

REACTIONS (9)
  - Chronic kidney disease [Unknown]
  - Urinary tract infection [Unknown]
  - Retinal detachment [Unknown]
  - Back injury [Unknown]
  - Weight decreased [Not Recovered/Not Resolved]
  - Off label use [Not Recovered/Not Resolved]
  - Splenomegaly [Unknown]
  - Nephrolithiasis [Not Recovered/Not Resolved]
  - Product dose omission issue [Unknown]
